FAERS Safety Report 9984682 (Version 1)
Quarter: 2014Q1

REPORT INFORMATION
  Report Type: Spontaneous
  Country: US (occurrence: US)
  Receive Date: 20140307
  Receipt Date: 20140307
  Transmission Date: 20141002
  Serious: No
  Sender: FDA-Public Use
  Company Number: US-GLAXOSMITHKLINE-A1058881A

PATIENT
  Age: 86 Year
  Sex: Female

DRUGS (6)
  1. BREO ELLIPTA [Suspect]
     Indication: SECRETION DISCHARGE
     Dosage: 1PUFF PER DAY
     Route: 055
     Dates: start: 201401
  2. MUCINEX [Concomitant]
  3. NORVASC [Concomitant]
  4. TOPROL [Concomitant]
  5. COUMADIN [Concomitant]
  6. LORTAB [Concomitant]

REACTIONS (10)
  - Pyrexia [Not Recovered/Not Resolved]
  - Fatigue [Not Recovered/Not Resolved]
  - Asthenia [Not Recovered/Not Resolved]
  - Hypotension [Not Recovered/Not Resolved]
  - Heart rate increased [Not Recovered/Not Resolved]
  - Gastroenteritis viral [Not Recovered/Not Resolved]
  - Nausea [Not Recovered/Not Resolved]
  - Vomiting [Not Recovered/Not Resolved]
  - Chest pain [Not Recovered/Not Resolved]
  - Insomnia [Not Recovered/Not Resolved]
